FAERS Safety Report 6425797-0 (Version None)
Quarter: 2009Q4

REPORT INFORMATION
  Report Type: 
  Country: None (occurrence: None)
  Receive Date: 20091103
  Receipt Date: 20090624
  Transmission Date: 20100525
  Serious: No
  Sender: FDA-Public Use
  Company Number: US-ABBOTT-09P-163-0581548-00

PATIENT
  Sex: Male
  Weight: 56.75 kg

DRUGS (7)
  1. BIAXIN CAPSULES 500MG [Suspect]
     Indication: INFECTIVE TENOSYNOVITIS
     Route: 048
     Dates: start: 20090527, end: 20090610
  2. RIFAMPIN [Concomitant]
     Indication: INFECTIVE TENOSYNOVITIS
     Route: 048
     Dates: start: 20090527
  3. VITAMIN A [Concomitant]
     Indication: MEDICAL DIET
     Route: 048
  4. VITAMIN D [Concomitant]
     Indication: MEDICAL DIET
     Route: 048
  5. FISH OIL [Concomitant]
     Indication: MEDICAL DIET
     Route: 048
  6. METAMUCIL [Concomitant]
     Indication: CONSTIPATION
     Route: 048
  7. SYNTHROID [Concomitant]
     Indication: HYPOTHYROIDISM

REACTIONS (6)
  - FATIGUE [None]
  - PRURITUS [None]
  - RASH GENERALISED [None]
  - RASH PAPULAR [None]
  - URTICARIA [None]
  - WEIGHT DECREASED [None]
